FAERS Safety Report 6299615-8 (Version None)
Quarter: 2009Q3

REPORT INFORMATION
  Report Type: 
  Country: None (occurrence: None)
  Receive Date: 20090806
  Receipt Date: 20090731
  Transmission Date: 20100115
  Serious: Yes (Hospitalization)
  Sender: FDA-Public Use
  Company Number: US-ELI_LILLY_AND_COMPANY-US200906006700

PATIENT
  Sex: Female

DRUGS (3)
  1. HUMULIN R [Suspect]
  2. HUMULIN R [Suspect]
  3. LEVEMIR [Concomitant]

REACTIONS (16)
  - ANGER [None]
  - ASTHENIA [None]
  - BLOOD GLUCOSE INCREASED [None]
  - CONFUSIONAL STATE [None]
  - CRYING [None]
  - FACE OEDEMA [None]
  - GASTROENTERITIS [None]
  - GINGIVAL OEDEMA [None]
  - GLYCOSYLATED HAEMOGLOBIN INCREASED [None]
  - MALAISE [None]
  - MEDICATION ERROR [None]
  - PAIN [None]
  - RESPIRATORY TRACT INFECTION [None]
  - SLUGGISHNESS [None]
  - TOOTH INFECTION [None]
  - TOOTHACHE [None]
